FAERS Safety Report 7040606-7 (Version None)
Quarter: 2010Q4

REPORT INFORMATION
  Report Type: 
  Country: None (occurrence: None)
  Receive Date: 20101012
  Receipt Date: 20101004
  Transmission Date: 20110411
  Serious: Yes (Death, Hospitalization)
  Sender: FDA-Public Use
  Company Number: CZ-AMGEN-QUU444715

PATIENT
  Sex: Female

DRUGS (6)
  1. ENBREL [Suspect]
     Indication: RHEUMATOID ARTHRITIS
     Route: 058
     Dates: end: 20100913
  2. WARFARIN SODIUM [Concomitant]
     Dosage: UNSPECIFIED
  3. ALENDRONIC ACID [Concomitant]
     Dates: start: 20060101
  4. MELOXICAM [Concomitant]
     Dates: start: 20070203
  5. TREXAN [Concomitant]
     Dates: start: 20050601
  6. MEDROL [Concomitant]
     Dates: start: 20040301

REACTIONS (7)
  - ARTHRALGIA [None]
  - CHILLS [None]
  - DEATH [None]
  - MYALGIA [None]
  - PHARYNGEAL ERYTHEMA [None]
  - PYREXIA [None]
  - TREMOR [None]
